FAERS Safety Report 14472941 (Version 1)
Quarter: 2018Q1

REPORT INFORMATION
  Report Type: Spontaneous
  Country: RU (occurrence: RU)
  Receive Date: 20180201
  Receipt Date: 20180201
  Transmission Date: 20180509
  Serious: Yes (Hospitalization, Other)
  Sender: FDA-Public Use
  Company Number: RU-ASTRAZENECA-2018SE12286

PATIENT
  Age: 35 Year
  Sex: Female
  Weight: 80 kg

DRUGS (3)
  1. BRILINTA [Suspect]
     Active Substance: TICAGRELOR
     Indication: MYOCARDIAL INFARCTION
     Route: 048
     Dates: start: 20171116, end: 20180124
  2. ATORVASTATIN [Concomitant]
     Active Substance: ATORVASTATIN
  3. DIUVER [Concomitant]
     Active Substance: TORSEMIDE

REACTIONS (3)
  - Vascular stent occlusion [Recovering/Resolving]
  - Myocardial infarction [Recovering/Resolving]
  - Atrioventricular block complete [Recovering/Resolving]
